FAERS Safety Report 12781462 (Version 1)
Quarter: 2016Q3

REPORT INFORMATION
  Report Type: Report from Study
  Country: DE (occurrence: DE)
  Receive Date: 20160926
  Receipt Date: 20160926
  Transmission Date: 20161109
  Serious: Yes (Hospitalization)
  Sender: FDA-Public Use
  Company Number: US-ASTRAZENECA-2016SF02088

PATIENT
  Age: 3 Month
  Sex: Female

DRUGS (3)
  1. SYNAGIS [Suspect]
     Active Substance: PALIVIZUMAB
     Indication: ANTIVIRAL PROPHYLAXIS
     Dosage: 45 MG
     Route: 030
     Dates: start: 20091211, end: 20091211
  2. SYNAGIS [Suspect]
     Active Substance: PALIVIZUMAB
     Indication: ANTIVIRAL PROPHYLAXIS
     Dosage: 45 MG
     Route: 030
     Dates: start: 20100111, end: 20100111
  3. SYNAGIS [Suspect]
     Active Substance: PALIVIZUMAB
     Indication: ANTIVIRAL PROPHYLAXIS
     Dosage: 45 MG
     Route: 030
     Dates: start: 20100401, end: 20100401

REACTIONS (2)
  - Pneumonia [Unknown]
  - Adenovirus infection [Unknown]

NARRATIVE: CASE EVENT DATE: 201002
